FAERS Safety Report 18436802 (Version 1)
Quarter: 2020Q4

REPORT INFORMATION
  Report Type: Spontaneous
  Country: US (occurrence: US)
  Receive Date: 20201028
  Receipt Date: 20201028
  Transmission Date: 20210114
  Serious: No
  Sender: FDA-Public Use
  Company Number: US-PFIZER INC-2020415832

PATIENT
  Age: 60 Year
  Sex: Female
  Weight: 58.97 kg

DRUGS (2)
  1. AMBEREN [Concomitant]
     Indication: MENOPAUSE
     Dosage: UNK
  2. PREMARIN [Suspect]
     Active Substance: ESTROGENS, CONJUGATED
     Indication: MENOPAUSE
     Dosage: 0.625 MG, 1X/DAY (0.625 MG, ONE A DAY, ORAL)
     Route: 048
     Dates: start: 202008

REACTIONS (1)
  - Therapeutic product effect incomplete [Unknown]
